FAERS Safety Report 6219735-3 (Version None)
Quarter: 2009Q2

REPORT INFORMATION
  Report Type: 
  Country: None (occurrence: None)
  Receive Date: 20090605
  Receipt Date: 20090527
  Transmission Date: 20091009
  Serious: Yes (Death)
  Sender: FDA-Public Use
  Company Number: CLOF-1000571

PATIENT
  Age: 17 Year
  Sex: Female

DRUGS (3)
  1. EVOLTRA (CLOFARABINE) SOLUTION FOR INFUSION [Suspect]
     Indication: ACUTE LYMPHOCYTIC LEUKAEMIA
     Dosage: 40 MG/KG, QD,
  2. CYCLOPHOSPHAMIDE (CYCLOPHOSPHAMIDE) INTRAVENOUS INFUSION [Concomitant]
  3. ETOPOSIDE (ETOPOSIDE PHOSPHATE) INTRAVENOUS INFUSION [Concomitant]

REACTIONS (1)
  - GENERAL PHYSICAL HEALTH DETERIORATION [None]
